FAERS Safety Report 7000709-X (Version None)
Quarter: 2010Q3

REPORT INFORMATION
  Report Type: 
  Country: None (occurrence: None)
  Receive Date: 20100920
  Receipt Date: 20100518
  Transmission Date: 20110219
  Serious: No
  Sender: FDA-Public Use
  Company Number: US-ASTRAZENECA-2010SE22982

PATIENT
  Age: 55 Year
  Sex: Female
  Weight: 74.8 kg

DRUGS (2)
  1. SEROQUEL XR [Suspect]
     Indication: ANXIETY
     Route: 048
     Dates: start: 20100514
  2. LIBRIUM [Concomitant]
     Indication: ANXIETY
     Route: 048
     Dates: start: 20050101

REACTIONS (2)
  - CHEST PAIN [None]
  - TREMOR [None]
